FAERS Safety Report 17534148 (Version 1)
Quarter: 2020Q1

REPORT INFORMATION
  Report Type: Report from Study
  Country: US (occurrence: US)
  Receive Date: 20200312
  Receipt Date: 20200312
  Transmission Date: 20200409
  Serious: Yes (Hospitalization, Disabling)
  Sender: FDA-Public Use
  Company Number: US-MYLANLABS-2020M1027716

PATIENT
  Age: 53 Year
  Sex: Male

DRUGS (9)
  1. OLANZAPINE. [Suspect]
     Active Substance: OLANZAPINE
     Indication: MAJOR DEPRESSION
     Dosage: ADMINISTERED IN DIVIDED DOSES
     Route: 048
  2. VALPROIC ACID. [Suspect]
     Active Substance: VALPROIC ACID
     Indication: BORDERLINE PERSONALITY DISORDER
  3. QUETIAPINE. [Suspect]
     Active Substance: QUETIAPINE
     Indication: DEMENTIA
  4. QUETIAPINE. [Suspect]
     Active Substance: QUETIAPINE
     Indication: MAJOR DEPRESSION
     Dosage: ADMINISTERED IN DIVIDED DOSES
     Route: 048
  5. QUETIAPINE. [Suspect]
     Active Substance: QUETIAPINE
     Indication: BORDERLINE PERSONALITY DISORDER
  6. OLANZAPINE. [Suspect]
     Active Substance: OLANZAPINE
     Indication: DEMENTIA
  7. VALPROIC ACID. [Suspect]
     Active Substance: VALPROIC ACID
     Indication: MAJOR DEPRESSION
     Dosage: ADMINISTERED IN DIVIDED DOSES
     Route: 065
  8. OLANZAPINE. [Suspect]
     Active Substance: OLANZAPINE
     Indication: BORDERLINE PERSONALITY DISORDER
  9. VALPROIC ACID. [Suspect]
     Active Substance: VALPROIC ACID
     Indication: DEMENTIA

REACTIONS (2)
  - Neuroleptic malignant syndrome [Unknown]
  - Off label use [Unknown]
